FAERS Safety Report 26183718 (Version 1)
Quarter: 2025Q4

REPORT INFORMATION
  Report Type: Spontaneous
  Country: CN (occurrence: CN)
  Receive Date: 20251221
  Receipt Date: 20251221
  Transmission Date: 20260118
  Serious: Yes (Hospitalization)
  Sender: ABBVIE
  Company Number: CN-ABBVIE-6594795

PATIENT
  Age: 62 Year
  Sex: Male
  Weight: 52 kg

DRUGS (3)
  1. VENETOCLAX [Suspect]
     Active Substance: VENETOCLAX
     Indication: Acute myeloid leukaemia
     Dosage: 200 MILLIGRAM, DAY ONE TO DAY SEVEN
     Route: 048
     Dates: start: 20251208, end: 20251214
  2. CYTARABINE HYDROCHLORIDE [Suspect]
     Active Substance: CYTARABINE HYDROCHLORIDE
     Indication: Acute myeloid leukaemia
     Dosage: 150 MILLIGRAM, DAY ONE TO DAY SEVEN
     Route: 042
     Dates: start: 20251208, end: 20251214
  3. OMACETAXINE MEPESUCCINATE [Suspect]
     Active Substance: OMACETAXINE MEPESUCCINATE
     Indication: Acute myeloid leukaemia
     Dosage: 3 GRAM, DAY ONE TO DAY SEVEN
     Route: 042
     Dates: start: 20251208, end: 20251214

REACTIONS (2)
  - Rash pruritic [Recovering/Resolving]
  - Diarrhoea [Recovering/Resolving]

NARRATIVE: CASE EVENT DATE: 20251210
